FAERS Safety Report 5094094-0 (Version None)
Quarter: 2006Q3

REPORT INFORMATION
  Report Type: 
  Country: None (occurrence: None)
  Receive Date: 20060831
  Receipt Date: 20060612
  Transmission Date: 20061208
  Serious: No
  Sender: FDA-Public Use
  Company Number: JP-MERCK-0607USA01555M

PATIENT
  Age: 32 Year
  Sex: Female
  Weight: 64 kg

DRUGS (2)
  1. ALDOMET [Suspect]
     Indication: HYPERTENSION
     Route: 048
     Dates: start: 20060506, end: 20060518
  2. LOPEMIN [Concomitant]
     Indication: DIARRHOEA
     Route: 048
     Dates: start: 20060518, end: 20060521

REACTIONS (2)
  - DRUG ERUPTION [None]
  - DRUG EXPOSURE DURING PREGNANCY [None]
